FAERS Safety Report 5718752-7 (Version None)
Quarter: 2008Q2

REPORT INFORMATION
  Report Type: 
  Country: None (occurrence: None)
  Receive Date: 20080425
  Receipt Date: 20080415
  Transmission Date: 20081010
  Serious: Yes (Other)
  Sender: FDA-Public Use
  Company Number: US-PFIZER INC-2008034068

PATIENT
  Sex: Female

DRUGS (1)
  1. CHANTIX [Suspect]

REACTIONS (4)
  - DIVERTICULITIS [None]
  - GALLBLADDER DISORDER [None]
  - GASTROENTERITIS [None]
  - RECTAL HAEMORRHAGE [None]
